FAERS Safety Report 7122526-2 (Version None)
Quarter: 2010Q4

REPORT INFORMATION
  Report Type: 
  Country: None (occurrence: None)
  Receive Date: 20101124
  Receipt Date: 20101116
  Transmission Date: 20110411
  Serious: Yes (Other)
  Sender: FDA-Public Use
  Company Number: BR-ABBOTT-10P-020-0671511-00

PATIENT
  Sex: Female
  Weight: 90 kg

DRUGS (8)
  1. DEPAKOTE ER [Suspect]
     Indication: EPILEPSY
     Route: 048
     Dates: start: 20100101
  2. DEPAKOTE ER [Suspect]
  3. CLOXAZOLAM [Concomitant]
     Indication: DEPRESSION
     Dosage: 0.5 IN 24 HOURS
  4. METFORMIN HYDROCHLORIDE [Concomitant]
     Indication: PRODUCT USED FOR UNKNOWN INDICATION
  5. GLYBURIDE [Concomitant]
     Indication: BLOOD GLUCOSE ABNORMAL
     Dosage: 2.5 MG
  6. METOPROLOL TARTRATE [Concomitant]
     Indication: PRODUCT USED FOR UNKNOWN INDICATION
  7. DILTIAZEM HYDROCHLORIDE [Concomitant]
     Indication: PRODUCT USED FOR UNKNOWN INDICATION
  8. CAPTOPRIL [Concomitant]
     Indication: BLOOD PRESSURE ABNORMAL

REACTIONS (2)
  - EPILEPSY [None]
  - HEADACHE [None]
